FAERS Safety Report 10284477 (Version 5)
Quarter: 2014Q4

REPORT INFORMATION
  Report Type: Report from Study
  Country: US (occurrence: US)
  Receive Date: 20140708
  Receipt Date: 20141013
  Transmission Date: 20150528
  Serious: Yes (Hospitalization)
  Sender: FDA-Public Use
  Company Number: US-ACTELION-A-US2014-101609

PATIENT
  Age: 73 Year
  Sex: Female

DRUGS (6)
  1. VENTAVIS [Suspect]
     Active Substance: ILOPROST
     Indication: PULMONARY ARTERIAL HYPERTENSION
     Dosage: 5 MCG, 6-9X/DAY
     Route: 055
     Dates: start: 20140619, end: 201406
  2. LETAIRIS [Suspect]
     Active Substance: AMBRISENTAN
     Indication: SYSTEMIC LUPUS ERYTHEMATOSUS
     Dosage: 10 MG, QD
     Route: 048
     Dates: start: 20121116
  3. WARFARIN [Concomitant]
     Active Substance: WARFARIN
  4. LETAIRIS [Suspect]
     Active Substance: AMBRISENTAN
     Indication: MYELODYSPLASTIC SYNDROME
  5. LETAIRIS [Suspect]
     Active Substance: AMBRISENTAN
     Indication: PULMONARY HYPERTENSION
  6. VENTAVIS [Suspect]
     Active Substance: ILOPROST
     Dosage: UNK
     Route: 055
     Dates: start: 20140619, end: 201406

REACTIONS (6)
  - Pulmonary thrombosis [Unknown]
  - Chest pain [Unknown]
  - Oral discomfort [Unknown]
  - Blood pressure increased [Unknown]
  - Cerebrovascular accident [Unknown]
  - Oral mucosal blistering [Unknown]
